FAERS Safety Report 4513453-5 (Version None)
Quarter: 2004Q4

REPORT INFORMATION
  Report Type: 
  Country: None (occurrence: None)
  Receive Date: 20041130
  Receipt Date: 20041020
  Transmission Date: 20050328
  Serious: Yes (Other)
  Sender: FDA-Public Use
  Company Number: US-BRISTOL-MYERS SQUIBB COMPANY-12738670

PATIENT
  Age: 67 Year
  Sex: Female
  Weight: 45 kg

DRUGS (5)
  1. ERBITUX [Suspect]
     Indication: COLON CANCER METASTATIC
     Route: 042
  2. BENADRYL [Concomitant]
     Indication: PREMEDICATION
  3. AVASTIN [Concomitant]
  4. COUMADIN [Concomitant]
  5. KEPPRA [Concomitant]

REACTIONS (2)
  - RASH ERYTHEMATOUS [None]
  - RASH PRURITIC [None]
